FAERS Safety Report 6156208-0 (Version None)
Quarter: 2009Q2

REPORT INFORMATION
  Report Type: 
  Country: None (occurrence: None)
  Receive Date: 20090415
  Receipt Date: 20090406
  Transmission Date: 20091009
  Serious: Yes (Hospitalization, Other)
  Sender: FDA-Public Use
  Company Number: US-PFIZER INC-2009174117

PATIENT
  Sex: Female
  Weight: 100.68 kg

DRUGS (15)
  1. LIPITOR [Suspect]
     Indication: BLOOD CHOLESTEROL INCREASED
     Dosage: 40 MG, 1X/DAY
     Route: 048
     Dates: start: 20020101, end: 20040101
  2. ZOCOR [Suspect]
  3. ANASTROZOLE [Concomitant]
     Dosage: UNK
  4. TAMOXIFEN [Concomitant]
  5. DIGOXIN [Concomitant]
     Dosage: UNK
  6. PAXIL [Concomitant]
     Dosage: UNK
  7. LASIX [Concomitant]
     Dosage: UNK
  8. SKELAXIN [Concomitant]
     Dosage: UNK
  9. CELEBREX [Concomitant]
     Dosage: UNK
  10. GLIPIZIDE [Concomitant]
     Dosage: UNK
  11. TRAZODONE [Concomitant]
     Dosage: UNK
  12. POTASSIUM [Concomitant]
     Dosage: UNK
  13. ASPIRIN [Concomitant]
     Dosage: UNK
  14. CERTAGEN [Concomitant]
     Dosage: UNK
  15. COZAAR [Concomitant]

REACTIONS (5)
  - CARDIAC FAILURE [None]
  - HEPATIC ENZYME INCREASED [None]
  - LIVER DISORDER [None]
  - MYALGIA [None]
  - RENAL DISORDER [None]
